FAERS Safety Report 7797565-9 (Version None)
Quarter: 2011Q4

REPORT INFORMATION
  Report Type: 
  Country: None (occurrence: None)
  Receive Date: 20111004
  Receipt Date: 20111004
  Transmission Date: 20120403
  Serious: Yes (Hospitalization)
  Sender: FDA-Public Use
  Company Number: None

PATIENT
  Age: 38 Year
  Sex: Female

DRUGS (1)
  1. EXJADE [Suspect]
     Indication: LABORATORY TEST ABNORMAL
     Dosage: 1000 MG DAILY PO
     Route: 048
     Dates: start: 20091209, end: 20110901

REACTIONS (1)
  - LIVER INJURY [None]
